FAERS Safety Report 9788427 (Version 2)
Quarter: 2014Q1

REPORT INFORMATION
  Report Type: Spontaneous
  Country: AU (occurrence: AU)
  Receive Date: 20131230
  Receipt Date: 20140216
  Transmission Date: 20141002
  Serious: Yes (Other)
  Sender: FDA-Public Use
  Company Number: AU-PFIZER INC-2013370797

PATIENT
  Age: 77 Year
  Sex: Female

DRUGS (9)
  1. REVATIO [Suspect]
     Indication: PULMONARY HYPERTENSION
     Dosage: 20 MG, 3X/DAY
  2. MIXTARD [Concomitant]
     Dosage: UNK
  3. THYROXINE [Concomitant]
     Dosage: 100 UG, 1X/DAY
  4. OSTELIN [Concomitant]
     Dosage: 1000 IU, 1X/DAY, MANE
  5. MAGMIN [Concomitant]
     Dosage: 2 DF, 2X/DAY
  6. COVERSYL [Concomitant]
     Dosage: 2.5 MG, 1X/DAY, NOCTE
  7. CLOPIDOGREL [Concomitant]
     Dosage: 75 MG, 1X/DAY
  8. SIMVASTATIN [Concomitant]
     Dosage: 20 MG, 1X/DAY, NOCTE
  9. ALLOPURINOL [Concomitant]
     Dosage: 100 MG, 1X/DAY

REACTIONS (2)
  - Cardiac disorder [Unknown]
  - Pulmonary arterial wedge pressure increased [Unknown]
